FAERS Safety Report 6381503-X (Version None)
Quarter: 2009Q3

REPORT INFORMATION
  Report Type: 
  Country: None (occurrence: None)
  Receive Date: 20090924
  Receipt Date: 20090914
  Transmission Date: 20100115
  Serious: Yes (Death)
  Sender: FDA-Public Use
  Company Number: AE-2009-194

PATIENT
  Age: 56 Year
  Sex: Female

DRUGS (8)
  1. METOPROLOL SUCCINATE [Suspect]
     Dosage: ORAL
     Route: 048
  2. METAXALONE [Suspect]
     Dosage: ORAL
     Route: 048
  3. ALPRAZOLAM [Suspect]
     Dosage: ORAL
     Route: 048
  4. VENLAFAXINE [Suspect]
     Dosage: ORAL
     Route: 048
  5. EZETIMIBE/SIMVASTATIN [Suspect]
     Dosage: ORAL
     Route: 048
  6. CHLORPHENIRAMINE MALEATE [Suspect]
     Dosage: ORAL
     Route: 048
  7. ESTROGENIC SUBSTANCE [Suspect]
     Dosage: ORAL
     Route: 048
  8. BUTALBITAL ACETAMINOPHEN AND CAFFEINE [Suspect]
     Dosage: ORAL
     Route: 048

REACTIONS (1)
  - COMPLETED SUICIDE [None]
